FAERS Safety Report 4608153-7 (Version None)
Quarter: 2005Q1

REPORT INFORMATION
  Report Type: 
  Country: None (occurrence: None)
  Receive Date: 20050314
  Receipt Date: 20041206
  Transmission Date: 20050727
  Serious: Yes (Death, Other)
  Sender: FDA-Public Use
  Company Number: US-MERCK-0412USA00724

PATIENT
  Age: 55 Year
  Sex: Male

DRUGS (4)
  1. VIOXX [Suspect]
     Indication: BACK PAIN
     Route: 048
     Dates: end: 20030101
  2. PERCOCET [Concomitant]
     Route: 065
  3. [THERAPY UNSPECIFIED] [Concomitant]
     Route: 065
  4. OXYCODONE [Concomitant]
     Route: 065

REACTIONS (2)
  - CONVULSION [None]
  - DEATH [None]
